FAERS Safety Report 6683420-4 (Version None)
Quarter: 2010Q2

REPORT INFORMATION
  Report Type: 
  Country: None (occurrence: None)
  Receive Date: 20100415
  Receipt Date: 20100401
  Transmission Date: 20101027
  Serious: Yes (Hospitalization, Other)
  Sender: FDA-Public Use
  Company Number: US-ELI_LILLY_AND_COMPANY-US201002007343

PATIENT
  Age: 64 Year
  Sex: Female

DRUGS (9)
  1. FORTEO [Suspect]
     Indication: OSTEOPOROSIS
     Dosage: 20 UG, DAILY (1/D)
     Route: 065
     Dates: start: 20090701, end: 20100214
  2. FORTEO [Suspect]
     Dosage: 20 UG, DAILY (1/D)
     Dates: start: 20100306
  3. CARBIDOPA-LEVODOPA [Concomitant]
  4. SIMVASTATIN [Concomitant]
  5. VESICARE [Concomitant]
  6. PANTOPRAZOLE [Concomitant]
  7. LYRICA [Concomitant]
  8. CALTRATE [Concomitant]
  9. MIRTAZAPINE [Concomitant]

REACTIONS (3)
  - HERNIA OBSTRUCTIVE [None]
  - ILEUS [None]
  - INCISIONAL HERNIA [None]
